FAERS Safety Report 4603988-9 (Version None)
Quarter: 2005Q1

REPORT INFORMATION
  Report Type: 
  Country: None (occurrence: None)
  Receive Date: 20050310
  Receipt Date: 20050225
  Transmission Date: 20050727
  Serious: Yes (Other)
  Sender: FDA-Public Use
  Company Number: US-GLAXOSMITHKLINE-A0547342A

PATIENT
  Sex: Female

DRUGS (1)
  1. NICODERM CQ [Suspect]
     Indication: ILL-DEFINED DISORDER
     Route: 062
     Dates: start: 20050201, end: 20050201

REACTIONS (1)
  - ANEURYSM [None]
